FAERS Safety Report 8501367-5 (Version None)
Quarter: 2012Q3

REPORT INFORMATION
  Report Type: 
  Country: None (occurrence: None)
  Receive Date: 20120710
  Receipt Date: 20120702
  Transmission Date: 20120928
  Serious: Yes (Other)
  Sender: FDA-Public Use
  Company Number: US-ABBOTT-12P-163-0953199-00

PATIENT
  Sex: Female

DRUGS (3)
  1. PRAVASTATIN [Concomitant]
     Indication: PRODUCT USED FOR UNKNOWN INDICATION
  2. SYNTHROID [Suspect]
     Indication: HYPOTHYROIDISM
     Dosage: EVERY MORNING
     Dates: start: 19760101
  3. UNKNOWN MEDICATIONS [Concomitant]
     Indication: OSTEOPOROSIS

REACTIONS (7)
  - LUNG NEOPLASM MALIGNANT [None]
  - ADRENAL INSUFFICIENCY [None]
  - WEIGHT INCREASED [None]
  - FOOD ALLERGY [None]
  - THYROID FUNCTION TEST ABNORMAL [None]
  - OSTEOPOROSIS [None]
  - AGE-RELATED MACULAR DEGENERATION [None]
